FAERS Safety Report 5066761-6 (Version None)
Quarter: 2006Q3

REPORT INFORMATION
  Report Type: 
  Country: None (occurrence: None)
  Receive Date: 20060801
  Receipt Date: 20060720
  Transmission Date: 20061208
  Serious: Yes (Other)
  Sender: FDA-Public Use
  Company Number: GB-ROCHE-456126

PATIENT
  Sex: Female

DRUGS (4)
  1. XELODA [Suspect]
     Indication: DRUG USE FOR UNKNOWN INDICATION
     Route: 065
  2. ELOXATIN [Suspect]
     Route: 042
     Dates: start: 20060626, end: 20060626
  3. DEXAMETHASONE TAB [Concomitant]
     Dates: start: 20060626, end: 20060626
  4. GRANISETRON  HCL [Concomitant]
     Dates: start: 20060626, end: 20060626

REACTIONS (9)
  - COLD SWEAT [None]
  - DYSPNOEA [None]
  - FEELING HOT [None]
  - HYPERHIDROSIS [None]
  - HYPERTENSION [None]
  - HYPOVENTILATION [None]
  - PRURITUS [None]
  - TACHYCARDIA [None]
  - VOMITING [None]
